FAERS Safety Report 4307490-3 (Version None)
Quarter: 2004Q1

REPORT INFORMATION
  Report Type: 
  Country: None (occurrence: None)
  Receive Date: 20040226
  Receipt Date: 20040211
  Transmission Date: 20041129
  Serious: Yes (Hospitalization)
  Sender: FDA-Public Use
  Company Number: UKP04000050

PATIENT
  Sex: Male

DRUGS (8)
  1. DANTRIUM [Suspect]
     Indication: MUSCLE SPASMS
     Dosage: ORAL
     Route: 048
  2. CARBAMAZEPINE [Concomitant]
  3. BACLOFEN [Concomitant]
  4. RANITIDINE [Concomitant]
  5. WARFARIN SODIUM [Concomitant]
  6. FYBOGEL (ISPAGHULA) [Concomitant]
  7. LACTULOSE [Concomitant]
  8. DIHYDROCODEINE (DIHYDROCODEINE) [Concomitant]

REACTIONS (3)
  - FEELING HOT [None]
  - HEAD INJURY [None]
  - ROAD TRAFFIC ACCIDENT [None]
